FAERS Safety Report 5188011-2 (Version None)
Quarter: 2006Q4

REPORT INFORMATION
  Report Type: 
  Country: None (occurrence: None)
  Receive Date: 20061214
  Receipt Date: 20061214
  Transmission Date: 20070319
  Serious: Yes (Other)
  Sender: FDA-Public Use
  Company Number: None

PATIENT
  Age: 59 Year
  Sex: Male
  Weight: 74.8435 kg

DRUGS (9)
  1. DIVALPROEX EXTENDED-RELEASE [Suspect]
     Indication: BIPOLAR DISORDER
     Dosage: 2000 MG DAILY PO
     Route: 048
     Dates: start: 20060922, end: 20061127
  2. TYLENOL W/ CODEINE NO. 3 [Concomitant]
  3. PERCOCET [Concomitant]
  4. INTERFERON BETA 1-A [Concomitant]
  5. ALENDORNATE [Concomitant]
  6. HYDROCHLOROTHIAZIDE [Concomitant]
  7. CLONAZEPAM [Concomitant]
  8. FELODIPINE [Concomitant]
  9. VALSARTAN [Concomitant]

REACTIONS (1)
  - HEPATIC ENZYME INCREASED [None]
